FAERS Safety Report 5015459-9 (Version None)
Quarter: 2006Q2

REPORT INFORMATION
  Report Type: 
  Country: None (occurrence: None)
  Receive Date: 20060530
  Receipt Date: 20060530
  Transmission Date: 20061013
  Serious: No
  Sender: FDA-Public Use
  Company Number: None

PATIENT
  Age: 48 Year
  Sex: Male
  Weight: 68.0396 kg

DRUGS (1)
  1. HEPARIN [Suspect]
     Indication: THROMBOSIS
     Dosage: IV
     Route: 042

REACTIONS (9)
  - ACCIDENTAL OVERDOSE [None]
  - ACTIVATED PARTIAL THROMBOPLASTIN TIME PROLONGED [None]
  - BRAIN STEM HAEMORRHAGE [None]
  - CEREBRAL HAEMORRHAGE [None]
  - DYSPNOEA [None]
  - INTRAVENTRICULAR HAEMORRHAGE [None]
  - JUGULAR VEIN THROMBOSIS [None]
  - LOCAL SWELLING [None]
  - LOSS OF CONSCIOUSNESS [None]
